FAERS Safety Report 24542384 (Version 1)
Quarter: 2024Q4

REPORT INFORMATION
  Report Type: Spontaneous
  Country: CN (occurrence: CN)
  Receive Date: 20241023
  Receipt Date: 20241023
  Transmission Date: 20250115
  Serious: Yes (Other)
  Sender: TAKEDA
  Company Number: CN-JNJFOC-20241043154

PATIENT
  Age: 75 Year
  Sex: Male

DRUGS (5)
  1. VELCADE [Suspect]
     Active Substance: BORTEZOMIB
     Indication: Plasma cell myeloma
     Dosage: 2.1 MILLIGRAM, QD
     Route: 058
     Dates: start: 20240711, end: 20240711
  2. DEXAMETHASONE [Suspect]
     Active Substance: DEXAMETHASONE
     Indication: Plasma cell myeloma
     Dosage: 40 MILLIGRAM, QD
     Route: 048
     Dates: start: 20240711, end: 20240711
  3. DARZALEX [Suspect]
     Active Substance: DARATUMUMAB
     Indication: Plasma cell myeloma
     Dosage: 1.8 GRAM, QD
     Route: 041
     Dates: start: 20240711, end: 20240711
  4. DARZALEX [Suspect]
     Active Substance: DARATUMUMAB
     Dosage: 960 MILLIGRAM
     Route: 041
  5. CYCLOPHOSPHAMIDE [Suspect]
     Active Substance: CYCLOPHOSPHAMIDE
     Indication: Plasma cell myeloma
     Dosage: 0.5 GRAM, QD
     Route: 041
     Dates: start: 20240711, end: 20240711

REACTIONS (2)
  - Hyperpyrexia [Recovering/Resolving]
  - Infusion related reaction [Recovering/Resolving]

NARRATIVE: CASE EVENT DATE: 20240711
